FAERS Safety Report 4979052-6 (Version None)
Quarter: 2006Q2

REPORT INFORMATION
  Report Type: 
  Country: None (occurrence: None)
  Receive Date: 20060417
  Receipt Date: 20060405
  Transmission Date: 20061013
  Serious: Yes (Other)
  Sender: FDA-Public Use
  Company Number: 222409

PATIENT
  Age: 21 Year
  Sex: Female

DRUGS (1)
  1. SOMATROPIN(SOMATROPIN) POWDER FOR INJECTION [Suspect]
     Indication: TURNER'S SYNDROME
     Dosage: 0.025 MG/KG  ; 0.03 MG/KG

REACTIONS (2)
  - AUTOIMMUNE THYROIDITIS [None]
  - PAPILLARY THYROID CANCER [None]
